FAERS Safety Report 12175358 (Version 2)
Quarter: 2016Q2

REPORT INFORMATION
  Report Type: Report from Study
  Country: ES (occurrence: ES)
  Receive Date: 20160314
  Receipt Date: 20160415
  Transmission Date: 20160815
  Serious: Yes (Hospitalization)
  Sender: FDA-Public Use
  Company Number: ES-SHIRE-ES201602869

PATIENT
  Age: 5 Year
  Sex: Male

DRUGS (4)
  1. IDURSULFASE [Suspect]
     Active Substance: IDURSULFASE
     Indication: MUCOPOLYSACCHARIDOSIS II
     Dosage: 0.5 MG/KG, 1X/WEEK
     Route: 041
     Dates: start: 20110504
  2. AZITROMICIN [Concomitant]
     Indication: PRODUCT USED FOR UNKNOWN INDICATION
     Dosage: 60 MG (200 MG/5 ML), 3X/DAY:TID (1.5 ML EVERY 8 H)
     Route: 065
  3. IDURSULFASE [Suspect]
     Active Substance: IDURSULFASE
     Dosage: 6 MG, UNKNOWN
     Route: 041
     Dates: start: 20100922
  4. PARACETAMOL [Concomitant]
     Active Substance: ACETAMINOPHEN
     Indication: PRODUCT USED FOR UNKNOWN INDICATION
     Dosage: UNK, UNKNOWN
     Route: 048

REACTIONS (1)
  - Adenoidal hypertrophy [Recovered/Resolved]

NARRATIVE: CASE EVENT DATE: 20130218
